FAERS Safety Report 4482293-8 (Version None)
Quarter: 2004Q4

REPORT INFORMATION
  Report Type: 
  Country: None (occurrence: None)
  Receive Date: 20041020
  Receipt Date: 20041006
  Transmission Date: 20050328
  Serious: Yes (Other)
  Sender: FDA-Public Use
  Company Number: USA040978664

PATIENT
  Age: 54 Year
  Sex: Female
  Weight: 56 kg

DRUGS (4)
  1. FORTEO [Suspect]
     Indication: OSTEOPOROSIS
     Dosage: 20 UG DAY
     Dates: start: 20040301, end: 20040801
  2. TYLENOL [Concomitant]
  3. CALCIUM [Concomitant]
  4. VITRUM [Concomitant]

REACTIONS (5)
  - ASPIRATION BONE MARROW ABNORMAL [None]
  - BONE DISORDER [None]
  - BONE MARROW DEPRESSION [None]
  - HAEMATOCRIT DECREASED [None]
  - WHITE BLOOD CELL COUNT DECREASED [None]
